FAERS Safety Report 7505743-9 (Version None)
Quarter: 2011Q2

REPORT INFORMATION
  Report Type: 
  Country: None (occurrence: None)
  Receive Date: 20110526
  Receipt Date: 20110523
  Transmission Date: 20111010
  Serious: Yes (Life-Threatening, Hospitalization, Other)
  Sender: FDA-Public Use
  Company Number: AT-PFIZER INC-2011111389

PATIENT
  Age: 54 Year
  Sex: Male

DRUGS (7)
  1. EFFEXOR XR [Suspect]
     Dosage: 300 MG, 1X/DAY
     Route: 048
     Dates: start: 20100701, end: 20110411
  2. ANAFRANIL [Suspect]
     Dosage: 225 MG, 1X/DAY
     Route: 048
     Dates: start: 20101001, end: 20110408
  3. CLONAZEPAM [Concomitant]
     Dosage: 1.5 MG, 1X/DAY
     Route: 048
     Dates: start: 20100901
  4. ATORVASTATIN CALCIUM [Suspect]
     Dosage: UNK
  5. EFFEXOR XR [Suspect]
     Dosage: 75 - 150 MG DAILY
     Route: 048
     Dates: start: 20110418
  6. ATORVASTATIN CALCIUM [Suspect]
     Dosage: 20 MG, 1X/DAY
     Route: 048
     Dates: start: 20101001, end: 20110411
  7. CLOZAPINE [Suspect]
     Dosage: 75 MG, 1X/DAY
     Route: 048
     Dates: start: 20101001, end: 20110408

REACTIONS (4)
  - GRAND MAL CONVULSION [None]
  - BLOOD CREATINE PHOSPHOKINASE INCREASED [None]
  - MOOD DISORDER DUE TO A GENERAL MEDICAL CONDITION [None]
  - C-REACTIVE PROTEIN INCREASED [None]
